FAERS Safety Report 5361308-9 (Version None)
Quarter: 2007Q2

REPORT INFORMATION
  Report Type: 
  Country: None (occurrence: None)
  Receive Date: 20070614
  Receipt Date: 20070611
  Transmission Date: 20071010
  Serious: Yes (Other)
  Sender: FDA-Public Use
  Company Number: 07-003A

PATIENT

DRUGS (1)
  1. CORTROSYN (COSYNTROPIN FOR INJECTION 0.25MG) [Suspect]
     Indication: ADRENOCORTICAL INSUFFICIENCY ACUTE

REACTIONS (1)
  - SYNCOPE [None]
